FAERS Safety Report 21193537 (Version 1)
Quarter: 2022Q3

REPORT INFORMATION
  Report Type: Spontaneous
  Country: US (occurrence: US)
  Receive Date: 20220810
  Receipt Date: 20220810
  Transmission Date: 20221027
  Serious: No
  Sender: FDA-Public Use
  Company Number: US-GSKCCFUS-Case-01452878_AE-83258

PATIENT
  Age: 92 Year
  Sex: Female

DRUGS (1)
  1. TRELEGY ELLIPTA [Suspect]
     Active Substance: FLUTICASONE FUROATE\UMECLIDINIUM BROMIDE\VILANTEROL TRIFENATATE
     Indication: Chronic obstructive pulmonary disease
     Dosage: 1 PUFF(S), QD, 100/62.5/25
     Route: 055
     Dates: start: 20220706, end: 20220719

REACTIONS (5)
  - Aphonia [Recovered/Resolved]
  - Oral candidiasis [Recovered/Resolved]
  - Glossodynia [Unknown]
  - Tongue erythema [Unknown]
  - Tongue coated [Unknown]

NARRATIVE: CASE EVENT DATE: 20220711
